FAERS Safety Report 18654362 (Version 2)
Quarter: 2021Q1

REPORT INFORMATION
  Report Type: Spontaneous
  Country: AR (occurrence: AR)
  Receive Date: 20201223
  Receipt Date: 20210105
  Transmission Date: 20210419
  Serious: Yes (Other)
  Sender: FDA-Public Use
  Company Number: AR-PFIZER INC-2020507856

PATIENT
  Age: 75 Year
  Sex: Female

DRUGS (1)
  1. SOMAVERT [Suspect]
     Active Substance: PEGVISOMANT
     Indication: ACROMEGALY
     Dosage: 15 MG, 7 TIMES PER WEEK
     Dates: start: 20111201, end: 202010

REACTIONS (5)
  - Bone disorder [Unknown]
  - Liver disorder [Unknown]
  - Fatigue [Unknown]
  - Cholelithiasis [Unknown]
  - Intercepted product prescribing error [Unknown]

NARRATIVE: CASE EVENT DATE: 2020
